FAERS Safety Report 4945851-X (Version None)
Quarter: 2006Q1

REPORT INFORMATION
  Report Type: 
  Country: None (occurrence: None)
  Receive Date: 20060117
  Receipt Date: 20041220
  Transmission Date: 20060701
  Serious: Yes (Life-Threatening, Hospitalization)
  Sender: FDA-Public Use
  Company Number: A03200500315

PATIENT
  Age: 82 Year
  Sex: Female

DRUGS (16)
  1. PLAVIX [Suspect]
     Indication: CARDIAC DISORDER
     Dosage: 75MG QD ORAL
     Route: 048
     Dates: start: 20021001
  2. PLAVIX [Suspect]
     Indication: PROPHYLAXIS
     Dosage: 75MG QD ORAL
     Route: 048
     Dates: start: 20021001
  3. SR57746A [Suspect]
     Route: 065
     Dates: start: 20050214
  4. ACETYLSALICYLIC ACID SRT [Concomitant]
  5. LISINOPRIL [Concomitant]
  6. GLYCERYL TRINITRATE [Concomitant]
  7. ATROPINE [Concomitant]
  8. DONATAL [Concomitant]
  9. DONEPEZIL HCL [Concomitant]
  10. AMLODIPINE [Concomitant]
  11. METOPROLOL TARTRATE [Concomitant]
  12. CALCIUM GLUCONATE [Concomitant]
  13. FOLIC ACID [Concomitant]
  14. MULTIVITAMIN [Concomitant]
  15. CALCITONIN [Concomitant]
  16. LOPERAMIDE [Concomitant]

REACTIONS (1)
  - HAEMATURIA TRAUMATIC [None]
